FAERS Safety Report 6372041-9 (Version None)
Quarter: 2009Q3

REPORT INFORMATION
  Report Type: 
  Country: None (occurrence: None)
  Receive Date: 20090923
  Receipt Date: 20090914
  Transmission Date: 20100115
  Serious: Yes (Hospitalization)
  Sender: FDA-Public Use
  Company Number: IS-MERCK-0909DNK00010

PATIENT
  Age: 18 Year
  Sex: Male

DRUGS (4)
  1. DECADRON [Suspect]
     Route: 048
     Dates: start: 20070101, end: 20070101
  2. ETOPOSIDE [Suspect]
     Indication: TESTIS CANCER
     Route: 065
     Dates: start: 20070101, end: 20070101
  3. CISPLATIN [Suspect]
     Indication: TESTIS CANCER
     Route: 065
     Dates: start: 20070101, end: 20070101
  4. IFOSFAMIDE [Suspect]
     Indication: TESTIS CANCER
     Route: 065
     Dates: start: 20070101, end: 20070101

REACTIONS (1)
  - PNEUMOTHORAX [None]
